FAERS Safety Report 4283857-7 (Version None)
Quarter: 2004Q1

REPORT INFORMATION
  Report Type: 
  Country: None (occurrence: None)
  Receive Date: 20040130
  Receipt Date: 20040122
  Transmission Date: 20041129
  Serious: Yes (Other)
  Sender: FDA-Public Use
  Company Number: GBWYE534826JAN04

PATIENT
  Age: 33 Year
  Sex: Female

DRUGS (2)
  1. OVRANETTE (LEVONORGESTREL/ETHINYL ESTRADIOL, TABLET) [Suspect]
     Indication: CONTRACEPTION
     Dosage: OD ORAL
     Route: 048
     Dates: start: 19990127
  2. EFFEXOR [Suspect]
     Dosage: OD
     Dates: start: 20020328

REACTIONS (3)
  - DRUG INEFFECTIVE [None]
  - DRUG INTERACTION [None]
  - PREGNANCY ON ORAL CONTRACEPTIVE [None]
